FAERS Safety Report 7190435-9 (Version None)
Quarter: 2010Q4

REPORT INFORMATION
  Report Type: 
  Country: None (occurrence: None)
  Receive Date: 20101223
  Receipt Date: 20101216
  Transmission Date: 20110411
  Serious: Yes (Other)
  Sender: FDA-Public Use
  Company Number: DE-ELI_LILLY_AND_COMPANY-DE201011006859

PATIENT
  Sex: Female

DRUGS (5)
  1. BYETTA [Suspect]
     Indication: DIABETES MELLITUS
     Dosage: 10 UG, UNK
     Route: 058
     Dates: start: 20080101, end: 20101211
  2. METFORMIN [Concomitant]
     Dosage: 1000 MG, UNK
  3. OMEPRAZOLE [Concomitant]
  4. CALCIUM [Concomitant]
  5. VITAMIN D [Concomitant]

REACTIONS (4)
  - CONSTIPATION [None]
  - DIZZINESS [None]
  - NAUSEA [None]
  - SYNCOPE [None]
